FAERS Safety Report 23569038 (Version 1)
Quarter: 2024Q1

REPORT INFORMATION
  Report Type: Other
  Country: US (occurrence: None)
  Receive Date: 20240227
  Receipt Date: 20240227
  Transmission Date: 20240410
  Serious: Yes (Death)
  Sender: FDA-Public Use
  Company Number: US-ROCHE-2135776

PATIENT
  Age: 75 Year
  Sex: Male

DRUGS (3)
  1. RITUXAN [Suspect]
     Active Substance: RITUXIMAB
     Indication: Multiple sclerosis
     Dosage: DATE OF TREATMENT :26/AUG/2019,31/JUL/2018,17/JUL/2018,22/APR/2021,26/AUG/2020,09/SEP/2020,11/MAR/20
     Route: 042
  2. RITUXAN [Suspect]
     Active Substance: RITUXIMAB
     Dosage: DATE OF TREATMENT:06/MAY/2021, DATE OF SERVICE: 21/NOV/2022
     Route: 042
  3. RITUXAN [Suspect]
     Active Substance: RITUXIMAB
     Dosage: DATE OF TREATMENT:21/OCT/2021. DATE OF SERVICE:05/MAY/2022,19/MAY/2022
     Route: 042

REACTIONS (2)
  - Off label use [Unknown]
  - Cardio-respiratory arrest [Fatal]
